FAERS Safety Report 10277480 (Version 3)
Quarter: 2014Q3

REPORT INFORMATION
  Report Type: Report from Study
  Country: US (occurrence: US)
  Receive Date: 20140703
  Receipt Date: 20140718
  Transmission Date: 20150326
  Serious: Yes (Hospitalization, Other)
  Sender: FDA-Public Use
  Company Number: US-ABBVIE-14P-163-1253954-00

PATIENT
  Age: 67 Year
  Sex: Female

DRUGS (2)
  1. HUMIRA [Suspect]
     Active Substance: ADALIMUMAB
     Indication: PSORIASIS
     Dates: start: 20140318, end: 20140318
  2. HUMIRA [Suspect]
     Active Substance: ADALIMUMAB
     Dates: start: 20140325, end: 20140422

REACTIONS (12)
  - Protein total decreased [Unknown]
  - Joint swelling [Recovering/Resolving]
  - Blood albumin decreased [Unknown]
  - White blood cell count increased [Unknown]
  - Psoriasis [Unknown]
  - Oedema peripheral [Recovering/Resolving]
  - Volvulus [Unknown]
  - Blood sodium decreased [Unknown]
  - Aspartate aminotransferase increased [Unknown]
  - Constipation [Recovered/Resolved]
  - Small intestinal obstruction [Recovered/Resolved]
  - Blood calcium decreased [Unknown]

NARRATIVE: CASE EVENT DATE: 201404
